FAERS Safety Report 7709501-1 (Version None)
Quarter: 2011Q3

REPORT INFORMATION
  Report Type: 
  Country: None (occurrence: None)
  Receive Date: 20110825
  Receipt Date: 20110811
  Transmission Date: 20111222
  Serious: Yes (Death)
  Sender: FDA-Public Use
  Company Number: JP-UCBSA-038105

PATIENT
  Sex: Male
  Weight: 56 kg

DRUGS (12)
  1. BETAMETHASONE [Concomitant]
     Route: 045
     Dates: start: 20110403, end: 20110509
  2. LANSOPRAZOLE [Concomitant]
     Indication: GASTRIC ULCER
     Route: 045
     Dates: start: 20110405, end: 20110607
  3. MUCOSIL-10 [Concomitant]
     Indication: SPUTUM RETENTION
     Route: 045
     Dates: start: 20110407, end: 20110530
  4. MUCODYNE [Concomitant]
     Indication: SPUTUM RETENTION
     Route: 045
     Dates: start: 20110418, end: 20110530
  5. CEFAZOLIN SODIUM [Concomitant]
     Indication: DIARRHOEA
     Route: 045
     Dates: start: 20110417, end: 20110530
  6. LIVACT [Concomitant]
     Indication: HYPOALBUMINAEMIA
     Route: 045
     Dates: start: 20110426, end: 20110530
  7. KEPPRA [Suspect]
     Indication: SIMPLE PARTIAL SEIZURES
     Route: 048
     Dates: start: 20110324, end: 20110607
  8. BETAMETHASONE [Concomitant]
     Indication: BRAIN OEDEMA
     Route: 048
     Dates: start: 20110322, end: 20110402
  9. DEPAKENE [Concomitant]
     Indication: SIMPLE PARTIAL SEIZURES
     Dosage: TOTAL DAILY DOSE: 800 MG
     Route: 048
     Dates: start: 20110218, end: 20110402
  10. DEPAKENE [Concomitant]
     Indication: SIMPLE PARTIAL SEIZURES
     Route: 045
     Dates: start: 20110403, end: 20110607
  11. MAGMITT [Concomitant]
     Indication: CONSTIPATION
     Route: 045
     Dates: start: 20110406, end: 20110530
  12. MUCOSTA [Concomitant]
     Indication: GASTRIC ULCER
     Dosage: DAILY DOSE: 200 MG
     Route: 048
     Dates: start: 20110330, end: 20110402

REACTIONS (1)
  - INTERSTITIAL LUNG DISEASE [None]
